FAERS Safety Report 9897455 (Version 1)
Quarter: 2014Q1

REPORT INFORMATION
  Report Type: Report from Study
  Country: US (occurrence: US)
  Receive Date: 20140214
  Receipt Date: 20140214
  Transmission Date: 20141002
  Serious: Yes (Death)
  Sender: FDA-Public Use
  Company Number: US-ROCHE-1349033

PATIENT
  Age: 61 Year
  Sex: Male

DRUGS (3)
  1. AVASTIN [Suspect]
     Indication: NON-SMALL CELL LUNG CANCER
     Dosage: FIRST LINE THERAPY
     Route: 065
  2. TAXOL [Concomitant]
     Dosage: FIRST LINE THERAPY
     Route: 065
  3. CARBOPLATIN [Concomitant]
     Dosage: FIRST LINE THERAPY
     Route: 065

REACTIONS (1)
  - Death [Fatal]
